FAERS Safety Report 8516115-2 (Version None)
Quarter: 2012Q3

REPORT INFORMATION
  Report Type: 
  Country: None (occurrence: None)
  Receive Date: 20120717
  Receipt Date: 20120619
  Transmission Date: 20120928
  Serious: No
  Sender: FDA-Public Use
  Company Number: US-NOVEN-12US004814

PATIENT

DRUGS (7)
  1. EFFEXOR [Concomitant]
     Indication: BIPOLAR DISORDER
     Dosage: 150 MG, BID
     Route: 048
  2. AMLODIPINE [Concomitant]
     Indication: BLOOD PRESSURE ABNORMAL
     Dosage: 10 MG, UNK
     Route: 048
  3. FENTANYL [Suspect]
     Indication: BONE PAIN
     Dosage: 100 UG/HR
     Route: 062
     Dates: start: 20020101
  4. LOPRESSOR [Concomitant]
     Indication: BLOOD PRESSURE ABNORMAL
     Dosage: 200 MG, UNK
     Route: 048
  5. TRICOR [Concomitant]
     Indication: BLOOD CHOLESTEROL
     Dosage: UNK
     Route: 048
  6. METFORMIN HYDROCHLORIDE [Concomitant]
     Indication: DIABETES MELLITUS
     Dosage: 500 MG, UNK
     Route: 048
  7. LAMICTAL [Concomitant]
     Indication: BIPOLAR DISORDER
     Dosage: UNK
     Route: 048

REACTIONS (2)
  - APPLICATION SITE EROSION [None]
  - PRODUCT QUALITY ISSUE [None]
